FAERS Safety Report 6489784-9 (Version None)
Quarter: 2009Q4

REPORT INFORMATION
  Report Type: 
  Country: None (occurrence: None)
  Receive Date: 20091210
  Receipt Date: 20091210
  Transmission Date: 20100525
  Serious: Yes (Disabling, Other)
  Sender: FDA-Public Use
  Company Number: None

PATIENT
  Age: 27 Year
  Sex: Female
  Weight: 108.4097 kg

DRUGS (1)
  1. MIRENA [Suspect]

REACTIONS (14)
  - ABASIA [None]
  - ABDOMINAL PAIN [None]
  - ACNE CYSTIC [None]
  - AMENORRHOEA [None]
  - BACK PAIN [None]
  - CHEST PAIN [None]
  - IMPAIRED WORK ABILITY [None]
  - MEDICAL DEVICE COMPLICATION [None]
  - MUSCLE SPASMS [None]
  - NAUSEA [None]
  - OVULATION PAIN [None]
  - PAIN [None]
  - VOMITING [None]
  - WEIGHT INCREASED [None]
